FAERS Safety Report 9694513 (Version 1)
Quarter: 2013Q4

REPORT INFORMATION
  Report Type: Spontaneous
  Country: US (occurrence: US)
  Receive Date: 20131118
  Receipt Date: 20131118
  Transmission Date: 20140711
  Serious: Yes (Other)
  Sender: FDA-Public Use
  Company Number: US-RB-060564-13

PATIENT
  Age: 50 Year
  Sex: Female

DRUGS (1)
  1. SUBOXONE FILM [Suspect]
     Indication: PAIN
     Dosage: SUBOXONE FILM; UNKNOWN DOSING DETAILS
     Route: 065

REACTIONS (2)
  - Arterial occlusive disease [Recovered/Resolved]
  - Off label use [Recovered/Resolved]
